FAERS Safety Report 21938563 (Version 1)
Quarter: 2023Q1

REPORT INFORMATION
  Report Type: Spontaneous
  Country: FR (occurrence: FR)
  Receive Date: 20230201
  Receipt Date: 20230201
  Transmission Date: 20230418
  Serious: Yes (Life-Threatening, Hospitalization, Disabling)
  Sender: FDA-Public Use
  Company Number: None

PATIENT
  Age: 56 Year
  Sex: Male
  Weight: 65 kg

DRUGS (4)
  1. MABTHERA [Suspect]
     Active Substance: RITUXIMAB
     Indication: Follicular lymphoma stage IV
     Route: 041
     Dates: start: 20200518, end: 20201019
  2. MABTHERA [Suspect]
     Active Substance: RITUXIMAB
     Dosage: MOST RECENT DOSE: 01/APR/2022
     Route: 041
     Dates: start: 20201222
  3. REVLIMID [Suspect]
     Active Substance: LENALIDOMIDE
     Indication: Follicular lymphoma stage IV
     Route: 065
     Dates: start: 20201222, end: 20220401
  4. REVLIMID [Suspect]
     Active Substance: LENALIDOMIDE
     Dosage: MOST RECENT DOSE: 19/OCT/2020?20MG 3 OUT OF 4 WEEKS EVERY 4 WEEKS
     Route: 065
     Dates: start: 20200518

REACTIONS (1)
  - Progressive multifocal leukoencephalopathy [Not Recovered/Not Resolved]

NARRATIVE: CASE EVENT DATE: 20220408
